FAERS Safety Report 21225839 (Version 1)
Quarter: 2022Q3

REPORT INFORMATION
  Report Type: Spontaneous
  Country: US (occurrence: US)
  Receive Date: 20220818
  Receipt Date: 20220818
  Transmission Date: 20221026
  Serious: No
  Sender: FDA-Public Use
  Company Number: US-STRIDES ARCOLAB LIMITED-2022SP000411

PATIENT
  Age: 40 Year
  Sex: Male

DRUGS (7)
  1. PROMETHAZINE HYDROCHLORIDE [Suspect]
     Active Substance: PROMETHAZINE HYDROCHLORIDE
     Indication: Cannabinoid hyperemesis syndrome
     Dosage: 25 MILLIGRAM
     Route: 048
  2. HALOPERIDOL [Suspect]
     Active Substance: HALOPERIDOL
     Indication: Cannabinoid hyperemesis syndrome
     Dosage: 5 MILLIGRAM
     Route: 042
  3. ONDANSETRON [Suspect]
     Active Substance: ONDANSETRON
     Indication: Cannabinoid hyperemesis syndrome
     Dosage: 4 MILLIGRAM
     Route: 042
  4. LIDOCAINE [Suspect]
     Active Substance: LIDOCAINE
     Indication: Cannabinoid hyperemesis syndrome
     Dosage: 15 MILLILITER
     Route: 065
  5. MORPHINE [Suspect]
     Active Substance: MORPHINE
     Indication: Cannabinoid hyperemesis syndrome
     Dosage: 4 MILLIGRAM
     Route: 042
  6. DICYCLOMINE [Suspect]
     Active Substance: DICYCLOMINE HYDROCHLORIDE
     Indication: Cannabinoid hyperemesis syndrome
     Dosage: 10 MILLILITER
     Route: 065
  7. ALUMINUM HYDROXIDE\DIMETHICONE\MAGNESIUM HYDROXIDE [Suspect]
     Active Substance: ALUMINUM HYDROXIDE\DIMETHICONE\MAGNESIUM HYDROXIDE
     Indication: Cannabinoid hyperemesis syndrome
     Dosage: 30 MILLILITER (ALUMINUM HYDROXIDE/MAGNESIUM HYDROXIDE/SIMETHICONE 200-200-20MG/5ML 30 ML)
     Route: 065

REACTIONS (1)
  - Drug ineffective for unapproved indication [Unknown]
